FAERS Safety Report 19151343 (Version 2)
Quarter: 2022Q4

REPORT INFORMATION
  Report Type: Spontaneous
  Country: US (occurrence: US)
  Receive Date: 20210419
  Receipt Date: 20221003
  Transmission Date: 20230113
  Serious: Yes (Other)
  Sender: FDA-Public Use
  Company Number: US-SA-SAC20210415000174

PATIENT
  Age: 62 Year
  Sex: Male

DRUGS (1)
  1. ZANTAC [Suspect]
     Active Substance: RANITIDINE HYDROCHLORIDE
     Indication: Dyspepsia
     Dosage: 75 MG, QD
     Dates: start: 201201, end: 201701

REACTIONS (2)
  - Bladder cancer [Unknown]
  - Skin cancer [Unknown]

NARRATIVE: CASE EVENT DATE: 20150401
